FAERS Safety Report 10178435 (Version 2)
Quarter: 2014Q2

REPORT INFORMATION
  Report Type: Spontaneous
  Country: DE (occurrence: DE)
  Receive Date: 20140519
  Receipt Date: 20140609
  Transmission Date: 20141212
  Serious: Yes (Life-Threatening, Hospitalization)
  Sender: FDA-Public Use
  Company Number: DE-JNJFOC-20140508516

PATIENT
  Age: 77 Year
  Sex: Male

DRUGS (6)
  1. XARELTO [Suspect]
     Indication: ATRIAL FIBRILLATION
     Dosage: 15 MG OR 20 MG
     Route: 048
     Dates: end: 20140407
  2. XARELTO [Suspect]
     Indication: CEREBROVASCULAR ACCIDENT PROPHYLAXIS
     Dosage: 15 MG OR 20 MG
     Route: 048
     Dates: end: 20140407
  3. PANTOZOL [Concomitant]
     Dosage: ONCE IN MORNING
     Route: 065
  4. SIMVASTATIN [Concomitant]
     Route: 065
  5. CORDAREX [Concomitant]
     Dosage: ONCE IN MORNING
     Route: 065
  6. AZILSARTAN MEDOXOMIL [Concomitant]
     Route: 065

REACTIONS (1)
  - Cerebral haemorrhage [Unknown]
